FAERS Safety Report 25803532 (Version 1)
Quarter: 2025Q3

REPORT INFORMATION
  Report Type: Spontaneous
  Country: US (occurrence: None)
  Receive Date: 20250915
  Receipt Date: 20250915
  Transmission Date: 20251021
  Serious: Yes (Hospitalization)
  Sender: FDA-CTU
  Company Number: None

PATIENT
  Age: 73 Year
  Sex: Male

DRUGS (11)
  1. REPATHA [Suspect]
     Active Substance: EVOLOCUMAB
     Indication: Hyperlipidaemia
     Route: 058
     Dates: start: 20200131
  2. AMLODIPINE [Concomitant]
     Active Substance: AMLODIPINE BESYLATE
  3. VITAMIN B12 TABLETS [Concomitant]
  4. HYDROXYCHLOROQUINE 100MG TABLETS [Concomitant]
  5. BETAMETHASONE DIP 0.05% CREAM [Concomitant]
  6. PREGABALIN 100MG CAPSULES [Concomitant]
  7. VITAMIN D2 CAPLETS [Concomitant]
  8. VALTREX 1GM TABLETS [Concomitant]
  9. POT CIT 1080MG TABLETS [Concomitant]
  10. CENTRUM SILVER TABLETS [Concomitant]
  11. MAGNESIUM 250MG TABLETS [Concomitant]

REACTIONS (2)
  - Urinary tract infection [None]
  - Sepsis [None]

NARRATIVE: CASE EVENT DATE: 20250912
